FAERS Safety Report 13748588 (Version 1)
Quarter: 2017Q3

REPORT INFORMATION
  Report Type: Report from Study
  Country: NL (occurrence: NL)
  Receive Date: 20170713
  Receipt Date: 20170713
  Transmission Date: 20171127
  Serious: Yes (Death)
  Sender: FDA-Public Use
  Company Number: PHHY2017NL102988

PATIENT
  Age: 87 Year
  Sex: Male

DRUGS (3)
  1. SANDOSTATIN LAR DEPOT [Suspect]
     Active Substance: OCTREOTIDE ACETATE
     Indication: ACROMEGALY
     Dosage: 30 MG, QMO (30MG/2ML ONCE EVERY 4 WEEKS)
     Route: 030
  2. SANDOSTATIN LAR DEPOT [Suspect]
     Active Substance: OCTREOTIDE ACETATE
     Dosage: 30 MG, QMO (30MG/2ML ONCE EVERY 4 WEEKS)
     Route: 030
     Dates: start: 20140124
  3. SANDOSTATIN LAR DEPOT [Suspect]
     Active Substance: OCTREOTIDE ACETATE
     Dosage: 30 MG, QMO (30MG/2ML ONCE EVERY 4 WEEKS)
     Route: 030
     Dates: start: 20170523

REACTIONS (1)
  - Death [Fatal]

NARRATIVE: CASE EVENT DATE: 20170707
